FAERS Safety Report 8320856-X (Version None)
Quarter: 2012Q2

REPORT INFORMATION
  Report Type: 
  Country: None (occurrence: None)
  Receive Date: 20120430
  Receipt Date: 20120423
  Transmission Date: 20120825
  Serious: Yes (Other)
  Sender: FDA-Public Use
  Company Number: PHHY2011CA74323

PATIENT
  Sex: Male

DRUGS (4)
  1. ZOMETA [Suspect]
     Indication: RENAL CELL CARCINOMA
     Dosage: 4 MG, QMO
     Route: 042
     Dates: start: 20110425
  2. CHEMOTHERAPEUTICS [Concomitant]
  3. ZOMETA [Suspect]
     Dosage: 4 MG, EVERY 4 WEEKS
     Route: 042
  4. ZOMETA [Suspect]
     Dosage: 4 MG, EVERY 8 WEEKS
     Route: 042

REACTIONS (8)
  - HAEMOGLOBIN DECREASED [None]
  - HYPOPHAGIA [None]
  - NAUSEA [None]
  - POSTOPERATIVE WOUND INFECTION [None]
  - WEIGHT DECREASED [None]
  - FATIGUE [None]
  - ASTHENIA [None]
  - DECREASED APPETITE [None]
